FAERS Safety Report 7228953-7 (Version None)
Quarter: 2011Q1

REPORT INFORMATION
  Report Type: 
  Country: None (occurrence: None)
  Receive Date: 20110117
  Receipt Date: 20110111
  Transmission Date: 20110831
  Serious: Yes (Hospitalization)
  Sender: FDA-Public Use
  Company Number: JP-BAYER-2011-003700

PATIENT
  Age: 67 Year
  Sex: Female

DRUGS (12)
  1. NEXAVAR [Suspect]
     Indication: HEPATIC NEOPLASM MALIGNANT
     Dosage: 400 MG, BID
     Route: 048
     Dates: start: 20100928, end: 20101101
  2. DEXTROMETHORPHAN HYDROBROMIDE [Concomitant]
     Indication: COUGH
     Dosage: 15 MG, TID
     Route: 048
     Dates: start: 20101005, end: 20101009
  3. LACTOBACILLUS BIFIDUS, LYOPHILIZED [Concomitant]
     Indication: DIARRHOEA
     Dosage: 1 G, TID
     Route: 048
     Dates: start: 20101012
  4. UNCODEABLE ^INVESTIGATIONAL DRUG^ [Suspect]
     Indication: HEPATIC NEOPLASM MALIGNANT
  5. LOXONIN [Concomitant]
     Indication: PYREXIA
     Dosage: 60 MG, PRN
     Route: 065
     Dates: start: 20100921, end: 20100921
  6. BIOFERMIN [Concomitant]
     Indication: DIARRHOEA
     Dosage: 1 DF, TID
     Route: 048
     Dates: start: 20101010, end: 20101012
  7. LOPERAMIDE HYDROCHLORIDE [Concomitant]
     Indication: DIARRHOEA
     Dosage: 1 MG, BID
     Route: 048
     Dates: start: 20101012
  8. SOLITA-T1 [Concomitant]
     Indication: DECREASED APPETITE
     Dosage: 500 ML, QD
     Route: 042
     Dates: start: 20101012, end: 20101012
  9. LACTEC [Concomitant]
     Indication: DECREASED APPETITE
     Dosage: 500 ML, QD
     Route: 042
     Dates: start: 20101019, end: 20101019
  10. UREA [Concomitant]
     Dosage: UNK
     Route: 061
     Dates: start: 20100928
  11. NEXAVAR [Suspect]
     Dosage: 400 MG, QD
     Route: 048
     Dates: start: 20101109, end: 20101220
  12. LACTEC [Concomitant]
     Indication: MALAISE

REACTIONS (2)
  - ASCITES [None]
  - OEDEMA PERIPHERAL [None]
